FAERS Safety Report 9331651 (Version 2)
Quarter: 2013Q3

REPORT INFORMATION
  Report Type: Spontaneous
  Country: NL (occurrence: NL)
  Receive Date: 20130605
  Receipt Date: 20130708
  Transmission Date: 20140515
  Serious: Yes (Other)
  Sender: FDA-Public Use
  Company Number: NL-AMGEN-NLDSP2013039343

PATIENT
  Age: 63 Year
  Sex: Male

DRUGS (3)
  1. ENBREL [Suspect]
     Indication: RHEUMATOID ARTHRITIS
     Dosage: 50 MG, 2X/WEEK
     Route: 065
  2. FISH OIL [Concomitant]
     Dosage: UNK
  3. PROBIOTICA [Concomitant]
     Dosage: UNK
     Dates: end: 201305

REACTIONS (1)
  - Renal impairment [Recovering/Resolving]
